FAERS Safety Report 9110570 (Version 1)
Quarter: 2013Q1

REPORT INFORMATION
  Report Type: Spontaneous
  Country: US (occurrence: US)
  Receive Date: 20130219
  Receipt Date: 20130219
  Transmission Date: 20140127
  Serious: No
  Sender: FDA-Public Use
  Company Number: US-BRISTOL-MYERS SQUIBB COMPANY-16588014

PATIENT
  Age: 63 Year
  Sex: Female

DRUGS (22)
  1. ORENCIA [Suspect]
     Indication: RHEUMATOID ARTHRITIS
     Dosage: 1FOR2WEEKS3TIMES,1FOR4WEEKS.?LASTINF22MAR12,?BATCH NO:1K70607 9/14,26JAN12,9FEB12,23FEB12,22MAR12
     Route: 042
     Dates: start: 20120126, end: 20120322
  2. PREDNISONE [Concomitant]
     Dosage: VARIOUS DOSES.
  3. VICODIN [Concomitant]
  4. MIRAPEX [Concomitant]
  5. LOSARTAN [Concomitant]
  6. NORVASC [Concomitant]
  7. HYDRALAZINE HCL [Concomitant]
  8. LIPITOR [Concomitant]
  9. OMEPRAZOLE [Concomitant]
  10. ADVAIR [Concomitant]
  11. ALBUTEROL [Concomitant]
  12. SINGULAIR [Concomitant]
  13. ATROVENT [Concomitant]
  14. FOLIC ACID [Concomitant]
  15. CITRACAL [Concomitant]
  16. FERGON [Concomitant]
  17. VERAMYST [Concomitant]
  18. TYLENOL [Concomitant]
  19. DIFLUCAN [Concomitant]
  20. LEVAQUIN [Concomitant]
  21. ASPIRIN [Concomitant]
  22. NASONEX [Concomitant]

REACTIONS (1)
  - Trigeminal neuralgia [Recovering/Resolving]
